FAERS Safety Report 8538799-5 (Version None)
Quarter: 2012Q3

REPORT INFORMATION
  Report Type: 
  Country: None (occurrence: None)
  Receive Date: 20120713
  Receipt Date: 20120706
  Transmission Date: 20120928
  Serious: Yes (Disabling, Other)
  Sender: FDA-Public Use
  Company Number: SIM_00392_2012

PATIENT
  Sex: Male
  Weight: 83.9154 kg

DRUGS (1)
  1. ALLERGY EYE RELIEF (HOMEOPATHIC) [Suspect]
     Indication: EYE IRRITATION
     Dosage: AS NEEDED/NI OPHTHALMIC
     Route: 047
     Dates: start: 20120101, end: 20120704

REACTIONS (8)
  - EYE SWELLING [None]
  - FOREIGN BODY IN EYE [None]
  - VISUAL IMPAIRMENT [None]
  - PRODUCT LABEL ISSUE [None]
  - LIQUID PRODUCT PHYSICAL ISSUE [None]
  - SUPERFICIAL INJURY OF EYE [None]
  - ECONOMIC PROBLEM [None]
  - EYE PAIN [None]
